FAERS Safety Report 4732868-3 (Version None)
Quarter: 2005Q3

REPORT INFORMATION
  Report Type: 
  Country: None (occurrence: None)
  Receive Date: 20050803
  Receipt Date: 20050414
  Transmission Date: 20060218
  Serious: No
  Sender: FDA-Public Use
  Company Number: US-GLAXOSMITHKLINE-A0554206A

PATIENT
  Age: 80 Year
  Sex: Female

DRUGS (4)
  1. AVANDAMET [Suspect]
     Route: 048
     Dates: start: 20050201, end: 20050401
  2. AVANDIA [Suspect]
     Route: 048
  3. TIAZAC [Concomitant]
  4. DIURETIC [Concomitant]

REACTIONS (1)
  - DIZZINESS [None]
